FAERS Safety Report 7212705-8 (Version None)
Quarter: 2011Q1

REPORT INFORMATION
  Report Type: 
  Country: None (occurrence: None)
  Receive Date: 20110106
  Receipt Date: 20101228
  Transmission Date: 20110831
  Serious: Yes (Hospitalization)
  Sender: FDA-Public Use
  Company Number: US-JNJFOC-20100702789

PATIENT
  Sex: Female
  Weight: 54.79 kg

DRUGS (7)
  1. METHOTREXATE [Concomitant]
  2. METHOTREXATE [Concomitant]
  3. REMICADE [Suspect]
     Indication: PSORIASIS
     Route: 042
  4. DARVOCET [Concomitant]
  5. REMICADE [Suspect]
     Indication: ARTHRITIS
     Route: 042
  6. NEXIUM [Concomitant]
     Indication: GASTROOESOPHAGEAL REFLUX DISEASE
  7. CLARITIN [Concomitant]

REACTIONS (25)
  - SWELLING [None]
  - PNEUMONIA [None]
  - FATIGUE [None]
  - RHINITIS ALLERGIC [None]
  - ACTIVITIES OF DAILY LIVING IMPAIRED [None]
  - LUNG NEOPLASM [None]
  - INTERVERTEBRAL DISC DEGENERATION [None]
  - NODULE [None]
  - HEADACHE [None]
  - DRUG INEFFECTIVE [None]
  - THYROID FUNCTION TEST ABNORMAL [None]
  - ARTHROPATHY [None]
  - GAIT DISTURBANCE [None]
  - DYSPEPSIA [None]
  - VISION BLURRED [None]
  - NAUSEA [None]
  - ASTHMA [None]
  - LUPUS-LIKE SYNDROME [None]
  - UPPER RESPIRATORY TRACT INFECTION [None]
  - DIZZINESS [None]
  - VULVOVAGINAL MYCOTIC INFECTION [None]
  - ATRIOVENTRICULAR BLOCK FIRST DEGREE [None]
  - OROPHARYNGEAL PAIN [None]
  - CONSTIPATION [None]
  - ORAL CANDIDIASIS [None]
